FAERS Safety Report 7074618-4 (Version None)
Quarter: 2010Q4

REPORT INFORMATION
  Report Type: 
  Country: None (occurrence: None)
  Receive Date: 20101029
  Receipt Date: 20101025
  Transmission Date: 20110411
  Serious: Yes (Death)
  Sender: FDA-Public Use
  Company Number: A0885261A

PATIENT
  Age: 71 Year
  Sex: Female

DRUGS (1)
  1. ZOFRAN [Suspect]
     Route: 048
     Dates: start: 20090101, end: 20100101

REACTIONS (2)
  - DISEASE COMPLICATION [None]
  - DISEASE PROGRESSION [None]
